FAERS Safety Report 23810526 (Version 1)
Quarter: 2024Q2

REPORT INFORMATION
  Report Type: Spontaneous
  Country: HR (occurrence: HR)
  Receive Date: 20240502
  Receipt Date: 20240502
  Transmission Date: 20240716
  Serious: Yes (Other)
  Sender: FDA-Public Use
  Company Number: None

PATIENT
  Age: 16 Year
  Sex: Female

DRUGS (6)
  1. CONTROLOC [Suspect]
     Active Substance: PANTOPRAZOLE SODIUM
     Dosage: 6 DF, 1X/DAY
     Route: 048
     Dates: start: 202403, end: 202403
  2. ARIPIPRAZOLE [Suspect]
     Active Substance: ARIPIPRAZOLE
     Dosage: 2 DF, 1X/DAY
     Route: 048
     Dates: start: 202403, end: 202403
  3. FLUPHENAZINE HYDROCHLORIDE [Suspect]
     Active Substance: FLUPHENAZINE HYDROCHLORIDE
     Dosage: 18 DOSAGE FORM, QD
     Route: 048
     Dates: start: 202403, end: 202403
  4. OXAZEPAM [Suspect]
     Active Substance: OXAZEPAM
     Dosage: 630 MILLIGRAM, QD
     Route: 048
     Dates: start: 202403, end: 202403
  5. OXAZEPAM [Suspect]
     Active Substance: OXAZEPAM
     Dosage: 24 DOSAGE FORM, QD
     Route: 048
     Dates: start: 202403, end: 202403
  6. ESCITALOPRAM OXALATE [Suspect]
     Active Substance: ESCITALOPRAM OXALATE
     Dosage: 60 MILLIGRAM, QD
     Route: 048
     Dates: start: 202403, end: 202403

REACTIONS (2)
  - Suicide attempt [Unknown]
  - Intentional overdose [Unknown]
